FAERS Safety Report 13197278 (Version 1)
Quarter: 2017Q1

REPORT INFORMATION
  Report Type: Spontaneous
  Country: US (occurrence: US)
  Receive Date: 20170208
  Receipt Date: 20170208
  Transmission Date: 20170428
  Serious: No
  Sender: FDA-Public Use
  Company Number: US-AMGEN-USASP2016166789

PATIENT

DRUGS (20)
  1. NEULASTA [Suspect]
     Active Substance: PEGFILGRASTIM
     Indication: PRODUCT USED FOR UNKNOWN INDICATION
     Dosage: UNK
     Route: 065
     Dates: start: 201611
  2. TAXOL [Concomitant]
     Active Substance: PACLITAXEL
     Indication: INVASIVE DUCTAL BREAST CARCINOMA
  3. APO-TAMOX [Concomitant]
     Active Substance: TAMOXIFEN
     Dosage: UNK
  4. CYTOXAN [Concomitant]
     Active Substance: CYCLOPHOSPHAMIDE
     Indication: INVASIVE DUCTAL BREAST CARCINOMA
  5. ADRIAMYCIN [Concomitant]
     Active Substance: DOXORUBICIN HYDROCHLORIDE
     Indication: PROGESTERONE RECEPTOR ASSAY POSITIVE
  6. ADRIAMYCIN [Concomitant]
     Active Substance: DOXORUBICIN HYDROCHLORIDE
     Indication: INTRADUCTAL PROLIFERATIVE BREAST LESION
     Dosage: UNK
     Route: 042
     Dates: start: 20161102
  7. CYTOXAN [Concomitant]
     Active Substance: CYCLOPHOSPHAMIDE
     Indication: INTRADUCTAL PROLIFERATIVE BREAST LESION
     Dosage: UNK
     Dates: start: 20161102
  8. CYTOXAN [Concomitant]
     Active Substance: CYCLOPHOSPHAMIDE
     Indication: HUMAN EPIDERMAL GROWTH FACTOR RECEPTOR NEGATIVE
  9. NOLVADEX [Concomitant]
     Active Substance: TAMOXIFEN CITRATE
     Dosage: UNK
     Dates: start: 2016
  10. TAMOFEN [Concomitant]
     Active Substance: TAMOXIFEN CITRATE
     Dosage: UNK
  11. TAMONE [Concomitant]
     Dosage: UNK
  12. ADRIAMYCIN [Concomitant]
     Active Substance: DOXORUBICIN HYDROCHLORIDE
     Indication: OESTROGEN RECEPTOR ASSAY POSITIVE
  13. ADRIAMYCIN [Concomitant]
     Active Substance: DOXORUBICIN HYDROCHLORIDE
     Indication: HUMAN EPIDERMAL GROWTH FACTOR RECEPTOR NEGATIVE
  14. TAXOL [Concomitant]
     Active Substance: PACLITAXEL
     Indication: INTRADUCTAL PROLIFERATIVE BREAST LESION
     Dosage: UNK
     Dates: start: 20161102
  15. TAXOL [Concomitant]
     Active Substance: PACLITAXEL
     Indication: OESTROGEN RECEPTOR ASSAY POSITIVE
  16. ADRIAMYCIN [Concomitant]
     Active Substance: DOXORUBICIN HYDROCHLORIDE
     Indication: INVASIVE DUCTAL BREAST CARCINOMA
  17. TAXOL [Concomitant]
     Active Substance: PACLITAXEL
     Indication: HUMAN EPIDERMAL GROWTH FACTOR RECEPTOR NEGATIVE
  18. CYTOXAN [Concomitant]
     Active Substance: CYCLOPHOSPHAMIDE
     Indication: OESTROGEN RECEPTOR ASSAY POSITIVE
  19. CYTOXAN [Concomitant]
     Active Substance: CYCLOPHOSPHAMIDE
     Indication: PROGESTERONE RECEPTOR ASSAY POSITIVE
  20. TAXOL [Concomitant]
     Active Substance: PACLITAXEL
     Indication: PROGESTERONE RECEPTOR ASSAY POSITIVE

REACTIONS (8)
  - Discomfort [Unknown]
  - Nausea [Unknown]
  - Nasopharyngitis [Unknown]
  - Pain [Unknown]
  - Insomnia [Unknown]
  - Fatigue [Unknown]
  - Headache [Unknown]
  - Unevaluable event [Unknown]

NARRATIVE: CASE EVENT DATE: 2016
